FAERS Safety Report 9322224 (Version 1)
Quarter: 2013Q2

REPORT INFORMATION
  Report Type: Spontaneous
  Country: US (occurrence: US)
  Receive Date: 20130531
  Receipt Date: 20130531
  Transmission Date: 20140414
  Serious: Yes (Other)
  Sender: FDA-Public Use
  Company Number: US-009507513-1305USA014614

PATIENT
  Sex: 0

DRUGS (2)
  1. SINEMET CR [Suspect]
     Dosage: UNK
     Route: 048
  2. FOSAMAX [Suspect]
     Dosage: UNK, QW
     Route: 048

REACTIONS (4)
  - Cerebrovascular accident [Unknown]
  - Dysphagia [Unknown]
  - Wrong technique in drug usage process [Unknown]
  - Drug administration error [Unknown]
